FAERS Safety Report 20059051 (Version 1)
Quarter: 2021Q4

REPORT INFORMATION
  Report Type: Spontaneous
  Country: DE (occurrence: None)
  Receive Date: 20211111
  Receipt Date: 20211111
  Transmission Date: 20220303
  Serious: Yes (Life-Threatening, Hospitalization, Other)
  Sender: FDA-Public Use
  Company Number: 2021A802730

PATIENT
  Age: 14758 Day
  Sex: Male
  Weight: 100 kg

DRUGS (2)
  1. BUDESONIDE [Suspect]
     Active Substance: BUDESONIDE
     Route: 055
  2. FORMOTEROL [Suspect]
     Active Substance: FORMOTEROL
     Indication: Chronic obstructive pulmonary disease
     Route: 055

REACTIONS (6)
  - Chronic obstructive pulmonary disease [Unknown]
  - Acute respiratory distress syndrome [Unknown]
  - Respiratory failure [Unknown]
  - Asthma [Unknown]
  - Status asthmaticus [Unknown]
  - Headache [Unknown]

NARRATIVE: CASE EVENT DATE: 20140108
